FAERS Safety Report 9227967 (Version 2)
Quarter: 2013Q3

REPORT INFORMATION
  Report Type: Spontaneous
  Country: DE (occurrence: DE)
  Receive Date: 20130412
  Receipt Date: 20130710
  Transmission Date: 20140515
  Serious: Yes (Other)
  Sender: FDA-Public Use
  Company Number: DE-AMGEN-DEUSP2013025547

PATIENT
  Age: 53 Year
  Sex: Female

DRUGS (2)
  1. ENBREL [Suspect]
     Indication: RHEUMATOID ARTHRITIS
     Dosage: 50 MG, WEEKLY
     Route: 065
     Dates: start: 20121207, end: 201301
  2. ENBREL [Suspect]
     Dosage: 50 MG, WEEKLY
     Route: 065
     Dates: start: 201303, end: 20130430

REACTIONS (4)
  - Gingival atrophy [Not Recovered/Not Resolved]
  - Stomatitis [Not Recovered/Not Resolved]
  - Mastication disorder [Not Recovered/Not Resolved]
  - Tooth infection [Not Recovered/Not Resolved]
